FAERS Safety Report 12669745 (Version 2)
Quarter: 2016Q4

REPORT INFORMATION
  Report Type: Report from Study
  Country: US (occurrence: US)
  Receive Date: 20160819
  Receipt Date: 20161014
  Transmission Date: 20170207
  Serious: Yes (Other)
  Sender: FDA-Public Use
  Company Number: US-JNJFOC-20160813094

PATIENT
  Sex: Female

DRUGS (1)
  1. DARZALEX [Suspect]
     Active Substance: DARATUMUMAB
     Indication: PLASMA CELL MYELOMA
     Route: 042
     Dates: end: 2016

REACTIONS (12)
  - Diarrhoea [Unknown]
  - Vomiting [Unknown]
  - Chest pain [Unknown]
  - Pain [Unknown]
  - Muscle spasms [Unknown]
  - Dizziness [Unknown]
  - Thrombosis [Unknown]
  - Arthralgia [Unknown]
  - Infusion related reaction [Unknown]
  - Immunodeficiency [Unknown]
  - Bone pain [Unknown]
  - Cold sweat [Unknown]
